FAERS Safety Report 18460966 (Version 1)
Quarter: 2020Q4

REPORT INFORMATION
  Report Type: Spontaneous
  Country: GB (occurrence: GB)
  Receive Date: 20201104
  Receipt Date: 20201104
  Transmission Date: 20210114
  Serious: Yes (Life-Threatening)
  Sender: FDA-Public Use
  Company Number: GB-TEVA-2020-GB-1844268

PATIENT
  Age: 45 Year
  Sex: Female
  Weight: 99 kg

DRUGS (11)
  1. OMEPRAZOLE. [Concomitant]
     Active Substance: OMEPRAZOLE
     Dosage: UNIT DOSE 1DF
     Dates: start: 20201003
  2. PARACETAMOL [Concomitant]
     Active Substance: ACETAMINOPHEN
     Dosage: UNIT DOSE 2DF
     Dates: start: 20201003, end: 20201003
  3. FOLIC ACID. [Concomitant]
     Active Substance: FOLIC ACID
     Dosage: UNIT DOSE 1DF
     Dates: start: 20201003
  4. TRIMETHOPRIM. [Suspect]
     Active Substance: TRIMETHOPRIM
     Dosage: UNIT DOSE 100 MG
     Dates: start: 20201004
  5. CODEINE PHOSPHATE [Concomitant]
     Active Substance: CODEINE PHOSPHATE
     Dosage: 1-2
     Dates: start: 20201002, end: 20201002
  6. ETORICOXIB. [Concomitant]
     Active Substance: ETORICOXIB
     Dosage: UNIT DOSE 1DF
     Dates: start: 20201003
  7. COCODAMOL [Concomitant]
     Active Substance: ACETAMINOPHEN\CODEINE PHOSPHATE
     Dosage: 1-2
     Dates: start: 20201003
  8. HYDROXYCHLOROQUINE SULFATE. [Concomitant]
     Active Substance: HYDROXYCHLOROQUINE SULFATE
     Dosage: UNIT DOSE 1DF
     Dates: start: 20201003
  9. PREGABALIN. [Concomitant]
     Active Substance: PREGABALIN
     Dosage: UNIT DOSE 1DF
     Dates: start: 20201004
  10. METHOTREXATE. [Concomitant]
     Active Substance: METHOTREXATE
     Dosage: UNIT DOSE 4DF
     Dates: start: 20201004
  11. AMITRIPTYLINE HYDROCHLORIDE. [Concomitant]
     Active Substance: AMITRIPTYLINE HYDROCHLORIDE
     Dosage: UNIT DOSE 1DF
     Dates: start: 20201003

REACTIONS (1)
  - Anaphylactic reaction [Unknown]

NARRATIVE: CASE EVENT DATE: 20201004
